FAERS Safety Report 8759100 (Version 6)
Quarter: 2012Q4

REPORT INFORMATION
  Report Type: 
  Country: AU (occurrence: AU)
  Receive Date: 20120829
  Receipt Date: 20121001
  Transmission Date: 20130627
  Serious: Yes (Other)
  Sender: FDA-Public Use
  Company Number: PHHY2012AU074097

PATIENT
  Age: 86 Year
  Sex: Female

DRUGS (1)
  1. ACLASTA [Suspect]
     Dosage: 5 mg
     Route: 042
     Dates: start: 20110908

REACTIONS (2)
  - Urinary tract infection [Recovered/Resolved]
  - Malaise [Unknown]
